FAERS Safety Report 4346668-X (Version None)
Quarter: 2004Q2

REPORT INFORMATION
  Report Type: 
  Country: None (occurrence: None)
  Receive Date: 20040426
  Receipt Date: 20030703
  Transmission Date: 20050107
  Serious: Yes (Death)
  Sender: FDA-Public Use
  Company Number: FR-ROCHE-341550

PATIENT
  Age: 2 Day
  Sex: Male
  Weight: 0.6 kg

DRUGS (9)
  1. LOXEN [Suspect]
     Indication: HYPERTENSION
     Route: 041
     Dates: start: 20030620, end: 20030620
  2. LOXEN [Suspect]
     Route: 041
     Dates: start: 20030619, end: 20030619
  3. LOXEN [Suspect]
     Route: 041
     Dates: start: 20030621, end: 20030713
  4. DOBUTAMINE [Concomitant]
     Dates: start: 20030619, end: 20030701
  5. FUROSEMIDE [Concomitant]
     Dates: start: 20030615, end: 20030615
  6. CEFOTAXIME SODIUM [Concomitant]
     Dates: start: 20030615, end: 20030615
  7. AMIKACIN [Concomitant]
     Dates: start: 20030615, end: 20030615
  8. NALBUPHINE HCL [Concomitant]
     Dates: start: 20030619, end: 20030619
  9. TRANDATE [Suspect]
     Indication: DRUG USE FOR UNKNOWN INDICATION
     Route: 042
     Dates: start: 20030714, end: 20030717

REACTIONS (2)
  - CARDIAC FAILURE [None]
  - DRUG EFFECT DECREASED [None]
